FAERS Safety Report 17558249 (Version 1)
Quarter: 2020Q1

REPORT INFORMATION
  Report Type: Report from Study
  Country: CO (occurrence: CO)
  Receive Date: 20200318
  Receipt Date: 20200318
  Transmission Date: 20200409
  Serious: No
  Sender: FDA-Public Use
  Company Number: CO-JNJFOC-20200316543

PATIENT
  Sex: Female
  Weight: 56 kg

DRUGS (3)
  1. STELARA [Suspect]
     Active Substance: USTEKINUMAB
     Indication: PSORIASIS
     Route: 058
     Dates: start: 20181024, end: 20181024
  2. STELARA [Suspect]
     Active Substance: USTEKINUMAB
     Route: 058
     Dates: start: 20181124, end: 20181124
  3. STELARA [Suspect]
     Active Substance: USTEKINUMAB
     Route: 058
     Dates: start: 20190221

REACTIONS (1)
  - Hepatic mass [Not Recovered/Not Resolved]

NARRATIVE: CASE EVENT DATE: 2019
